FAERS Safety Report 8195400-0 (Version None)
Quarter: 2012Q1

REPORT INFORMATION
  Report Type: 
  Country: None (occurrence: None)
  Receive Date: 20120308
  Receipt Date: 20120302
  Transmission Date: 20120608
  Serious: Yes (Life-Threatening, Hospitalization, Other)
  Sender: FDA-Public Use
  Company Number: PHHY2012MX019319

PATIENT
  Sex: Male

DRUGS (1)
  1. DIOVAN [Suspect]
     Indication: PORTAL HYPERTENSION
     Dosage: 1 DF, DAILY (160 MG)
     Dates: start: 20120201, end: 20120229

REACTIONS (3)
  - TERMINAL STATE [None]
  - HAEMORRHAGE [None]
  - PAIN [None]
